FAERS Safety Report 5381138-1 (Version None)
Quarter: 2007Q3

REPORT INFORMATION
  Report Type: 
  Country: None (occurrence: None)
  Receive Date: 20070706
  Receipt Date: 20070627
  Transmission Date: 20080115
  Serious: No
  Sender: FDA-Public Use
  Company Number: FR-PFIZER INC-2007048544

PATIENT
  Sex: Female
  Weight: 65 kg

DRUGS (2)
  1. ZITHROMAX [Suspect]
     Indication: PHARYNGOLARYNGEAL PAIN
     Route: 048
     Dates: start: 20070604, end: 20070606
  2. PROZAC [Concomitant]

REACTIONS (1)
  - EPISTAXIS [None]
